FAERS Safety Report 8175411-1 (Version None)
Quarter: 2012Q1

REPORT INFORMATION
  Report Type: 
  Country: None (occurrence: None)
  Receive Date: 20120229
  Receipt Date: 20120222
  Transmission Date: 20120608
  Serious: Yes (Other)
  Sender: FDA-Public Use
  Company Number: US-ABBOTT-11P-163-0878105-00

PATIENT
  Sex: Female
  Weight: 93.524 kg

DRUGS (17)
  1. FENTANYL [Concomitant]
     Indication: PAIN
     Dosage: PATCH, EVERY 72 HOURS
  2. TOPAMAX [Concomitant]
     Indication: FIBROMYALGIA
  3. SELMA [Concomitant]
     Indication: PRODUCT USED FOR UNKNOWN INDICATION
  4. COLESTIPOL HYDROCHLORIDE [Concomitant]
     Indication: CROHN'S DISEASE
  5. COLESTIPOL HYDROCHLORIDE [Concomitant]
     Indication: DIARRHOEA
  6. CYMBALTA [Concomitant]
     Indication: FIBROMYALGIA
  7. VITAMIN B-12 [Concomitant]
     Indication: PRODUCT USED FOR UNKNOWN INDICATION
     Dosage: MONTHLY
     Route: 050
  8. ASCORBIC ACID [Concomitant]
     Indication: SUPPLEMENTATION THERAPY
  9. OXYCODONE HCL AND ACETAMINOPHEN [Concomitant]
     Indication: BREAKTHROUGH PAIN
     Dosage: 7.5/500MG AS NEEDED
  10. DILTIAZEM HCL [Concomitant]
     Indication: MITRAL VALVE PROLAPSE
  11. NEXIUM [Concomitant]
     Indication: GASTROOESOPHAGEAL REFLUX DISEASE
  12. HUMIRA [Suspect]
     Indication: CROHN'S DISEASE
     Dates: start: 20110214
  13. VITAMIN D [Concomitant]
     Indication: VITAMIN SUPPLEMENTATION
  14. DILTIAZEM HCL [Concomitant]
     Indication: HEART RATE IRREGULAR
  15. PROMETHAZINE [Concomitant]
     Indication: NAUSEA
  16. TIZANIDINE HCL [Concomitant]
     Indication: MUSCLE SPASMS
  17. OXYCODONE HCL [Concomitant]
     Indication: PRODUCT USED FOR UNKNOWN INDICATION

REACTIONS (12)
  - TOOTH FRACTURE [None]
  - FISTULA [None]
  - TOOTH INFECTION [None]
  - MALAISE [None]
  - TOOTHACHE [None]
  - UPPER RESPIRATORY TRACT INFECTION [None]
  - PYREXIA [None]
  - OSTEONECROSIS [None]
  - RESPIRATORY TRACT INFECTION [None]
  - CROHN'S DISEASE [None]
  - FLATULENCE [None]
  - PAIN [None]
